FAERS Safety Report 24877641 (Version 2)
Quarter: 2025Q1

REPORT INFORMATION
  Report Type: Spontaneous
  Country: US (occurrence: US)
  Receive Date: 20250123
  Receipt Date: 20250127
  Transmission Date: 20250409
  Serious: Yes (Life-Threatening, Hospitalization)
  Sender: MYLAN
  Company Number: US-MYLANLABS-2025M1004802

PATIENT
  Age: 25 Year
  Sex: Female

DRUGS (14)
  1. TACROLIMUS [Suspect]
     Active Substance: TACROLIMUS
     Indication: Immunosuppressant drug therapy
     Route: 065
  2. SILDENAFIL [Suspect]
     Active Substance: SILDENAFIL
     Indication: Pulmonary arterial hypertension
     Route: 065
  3. PREDNISONE [Suspect]
     Active Substance: PREDNISONE
     Indication: Systemic lupus erythematosus
     Route: 065
  4. EPOPROSTENOL [Suspect]
     Active Substance: EPOPROSTENOL
     Indication: Right ventricular failure
     Route: 042
  5. MILRINONE [Suspect]
     Active Substance: MILRINONE
     Indication: Right ventricular failure
     Route: 042
  6. MACITENTAN [Suspect]
     Active Substance: MACITENTAN
     Indication: Pulmonary arterial hypertension
     Route: 042
  7. TREPROSTINIL [Suspect]
     Active Substance: TREPROSTINIL
     Indication: Pulmonary arterial hypertension
     Route: 048
  8. HYDROXYCHLOROQUINE [Suspect]
     Active Substance: HYDROXYCHLOROQUINE
     Indication: Systemic lupus erythematosus
     Route: 065
  9. NITRIC OXIDE [Suspect]
     Active Substance: NITRIC OXIDE
     Indication: Right ventricular failure
     Route: 055
  10. APIXABAN [Concomitant]
     Active Substance: APIXABAN
     Indication: Deep vein thrombosis
     Route: 065
  11. METHYLPREDNISOLONE [Concomitant]
     Active Substance: METHYLPREDNISOLONE
     Indication: Immunosuppressant drug therapy
     Route: 042
  12. LAPINE T-LYMPHOCYTE IMMUNE GLOBULIN [Concomitant]
     Active Substance: LAPINE T-LYMPHOCYTE IMMUNE GLOBULIN
     Indication: Immunosuppressant drug therapy
     Route: 065
  13. Immunoglobulin [Concomitant]
     Indication: Immunosuppressant drug therapy
     Route: 042
  14. GANCICLOVIR [Concomitant]
     Active Substance: GANCICLOVIR
     Indication: Product used for unknown indication
     Route: 065

REACTIONS (2)
  - Thrombotic microangiopathy [Recovering/Resolving]
  - Drug ineffective [Unknown]
